FAERS Safety Report 15592313 (Version 1)
Quarter: 2018Q4

REPORT INFORMATION
  Report Type: Spontaneous
  Country: JP (occurrence: JP)
  Receive Date: 20181107
  Receipt Date: 20181107
  Transmission Date: 20190205
  Serious: Yes (Other)
  Sender: FDA-Public Use
  Company Number: JP-009507513-1810JPN003955J

PATIENT
  Age: 74 Year
  Sex: Male
  Weight: 54 kg

DRUGS (4)
  1. FENTANYL. [Suspect]
     Active Substance: FENTANYL
     Dosage: 100 MICROGRAM, UNK
     Route: 065
  2. REMIFENTANIL HYDROCHLORIDE. [Suspect]
     Active Substance: REMIFENTANIL HYDROCHLORIDE
     Dosage: 0.15 DOSAGE FORM, UNK
     Route: 065
  3. THIAMYLAL SODIUM [Suspect]
     Active Substance: THIAMYLAL SODIUM
     Dosage: 175 MILLIGRAM, UNK
     Route: 065
  4. ESLAX INTRAVENOUS 25MG/2.5ML [Suspect]
     Active Substance: ROCURONIUM BROMIDE
     Indication: NEUROMUSCULAR BLOCKING THERAPY
     Dosage: 40 MILLIGRAM, UNK
     Route: 042

REACTIONS (1)
  - Gastrooesophageal reflux disease [Recovering/Resolving]
